FAERS Safety Report 4768364-7 (Version None)
Quarter: 2005Q3

REPORT INFORMATION
  Report Type: 
  Country: None (occurrence: None)
  Receive Date: 20050906
  Receipt Date: 20050713
  Transmission Date: 20060218
  Serious: No
  Sender: FDA-Public Use
  Company Number: 2005-BP-11810BP

PATIENT
  Sex: Female

DRUGS (6)
  1. SPIRIVA [Suspect]
     Indication: CHRONIC OBSTRUCTIVE PULMONARY DISEASE
     Dosage: 18 MG (18 MG) , IH
     Route: 055
     Dates: start: 20050601, end: 20050703
  2. ALBUTEROL [Concomitant]
  3. FLOVENT [Concomitant]
  4. ZESTRIL [Concomitant]
  5. SINGULAIR [Concomitant]
  6. SEREVENT [Concomitant]

REACTIONS (3)
  - DIARRHOEA [None]
  - HEART RATE INCREASED [None]
  - URINE ABNORMALITY [None]
